FAERS Safety Report 4378748-7 (Version None)
Quarter: 2004Q2

REPORT INFORMATION
  Report Type: 
  Country: None (occurrence: None)
  Receive Date: 20040609
  Receipt Date: 20040521
  Transmission Date: 20050107
  Serious: Yes (Hospitalization, Other)
  Sender: FDA-Public Use
  Company Number: USA040568225

PATIENT
  Age: 54 Year

DRUGS (1)
  1. FORTEO [Suspect]

REACTIONS (3)
  - ABSCESS [None]
  - IMPAIRED HEALING [None]
  - SKIN GRAFT [None]
